FAERS Safety Report 16974100 (Version 1)
Quarter: 2019Q4

REPORT INFORMATION
  Report Type: Spontaneous
  Country: GB (occurrence: GB)
  Receive Date: 20191030
  Receipt Date: 20191030
  Transmission Date: 20200122
  Serious: Yes (Other)
  Sender: FDA-Public Use
  Company Number: GB-TEVA-2019-GB-1129474

PATIENT
  Age: 24 Year
  Sex: Female
  Weight: 66.67 kg

DRUGS (1)
  1. TRIMETHOPRIM. [Suspect]
     Active Substance: TRIMETHOPRIM
     Indication: ACNE
     Dosage: 600 MG
     Route: 048

REACTIONS (7)
  - Eye swelling [Unknown]
  - Headache [Unknown]
  - Lip swelling [Unknown]
  - Swollen tongue [Unknown]
  - Musculoskeletal stiffness [Unknown]
  - Meningitis aseptic [Not Recovered/Not Resolved]
  - Malaise [Unknown]

NARRATIVE: CASE EVENT DATE: 20191002
